FAERS Safety Report 10244709 (Version 1)
Quarter: 2014Q1

REPORT INFORMATION
  Report Type: Spontaneous
  Country: US (occurrence: None)
  Receive Date: 20140306
  Receipt Date: 20140306
  Transmission Date: 20141002
  Serious: Yes (Other)
  Sender: FDA-Public Use
  Company Number: 163-21880-13022496

PATIENT
  Age: 66 Year
  Sex: Male
  Weight: 74.8 kg

DRUGS (5)
  1. REVLIMID (LENALIDOMIDE) (CAPSULES) [Suspect]
     Indication: PLASMA CELL MYELOMA
     Dosage: 25 MG, 14 IN 21 D, PO
     Route: 048
     Dates: start: 201211
  2. CYMBALTA [Concomitant]
  3. BLOOD PRESSURE MEDICATION (OTHER ANTIHYPERTENSIVES) (UNKNOWN) [Concomitant]
  4. DEXAMETHASONE (DEXAMETHASONE) (UNKNOWN) [Concomitant]
  5. FENTANYL (FENTANYL) (POULTICE OR PATCH) [Concomitant]

REACTIONS (8)
  - Pneumonia escherichia [None]
  - Blood potassium increased [None]
  - Localised infection [None]
  - Fluid retention [None]
  - Hypoaesthesia [None]
  - Tremor [None]
  - Malaise [None]
  - Infection susceptibility increased [None]
